FAERS Safety Report 7001278-0 (Version None)
Quarter: 2010Q3

REPORT INFORMATION
  Report Type: 
  Country: None (occurrence: None)
  Receive Date: 20100920
  Receipt Date: 20100916
  Transmission Date: 20110219
  Serious: Yes (Death, Hospitalization)
  Sender: FDA-Public Use
  Company Number: TR-ASTRAZENECA-2010SE43048

PATIENT
  Age: 26788 Day
  Sex: Female
  Weight: 80 kg

DRUGS (3)
  1. ARIMIDEX [Suspect]
     Indication: BREAST CANCER
     Route: 048
     Dates: start: 20080713, end: 20100628
  2. LEVOTIRON [Concomitant]
     Indication: HYPOTHYROIDISM
     Route: 048
     Dates: end: 20100709
  3. CA + D VIT [Concomitant]
     Route: 048
     Dates: end: 20100628

REACTIONS (2)
  - NEUTROPENIA [None]
  - UROSEPSIS [None]
